FAERS Safety Report 19394204 (Version 1)
Quarter: 2021Q2

REPORT INFORMATION
  Report Type: Spontaneous
  Country: US (occurrence: US)
  Receive Date: 20210609
  Receipt Date: 20210609
  Transmission Date: 20210717
  Serious: Yes (Hospitalization, Other)
  Sender: FDA-Public Use
  Company Number: US-SAMSUNG BIOEPIS-SB-2021-13672

PATIENT
  Age: 14 Year
  Sex: Male

DRUGS (3)
  1. INFLIXIMAB [Suspect]
     Active Substance: INFLIXIMAB
     Indication: COLITIS ULCERATIVE
     Dosage: UNKNOWN INDUCTION DOSE
     Route: 065
  2. INFLIXIMAB [Suspect]
     Active Substance: INFLIXIMAB
     Dosage: UNKNOWN MAINTENANCE DOSE
     Route: 065
  3. METHOTREXATE. [Suspect]
     Active Substance: METHOTREXATE
     Indication: COLITIS ULCERATIVE
     Dosage: UNKNOWN AND LATER TAPERED OFF
     Route: 065

REACTIONS (10)
  - Subperiosteal abscess [Recovered/Resolved]
  - Immunodeficiency [Unknown]
  - Otitis media acute [Unknown]
  - Staphylococcal infection [Unknown]
  - Colitis ulcerative [Unknown]
  - Chronic sinusitis [Unknown]
  - Influenza [Unknown]
  - Off label use [Unknown]
  - Osteomyelitis [Recovered/Resolved]
  - Cellulitis [Unknown]
